FAERS Safety Report 15562657 (Version 4)
Quarter: 2018Q4

REPORT INFORMATION
  Report Type: Spontaneous
  Country: JP (occurrence: JP)
  Receive Date: 20181029
  Receipt Date: 20181122
  Transmission Date: 20190205
  Serious: Yes (Life-Threatening, Hospitalization, Other)
  Sender: FDA-Public Use
  Company Number: US-ASTRAZENECA-2018SF41389

PATIENT
  Age: 8 Month
  Sex: Male
  Weight: 8.1 kg

DRUGS (3)
  1. SYNAGIS [Suspect]
     Active Substance: PALIVIZUMAB
     Indication: EBSTEIN^S ANOMALY
     Route: 030
     Dates: start: 20180309
  2. INDERAL [Suspect]
     Active Substance: PROPRANOLOL HYDROCHLORIDE
     Indication: SUPRAVENTRICULAR TACHYCARDIA
     Route: 048
     Dates: start: 201809
  3. LACTOBACILLUS ACIDOPHILUS [Concomitant]
     Active Substance: LACTOBACILLUS ACIDOPHILUS
     Indication: GASTROINTESTINAL DISORDER
     Dosage: AS NEEDED
     Route: 048

REACTIONS (9)
  - Irritability [Recovering/Resolving]
  - Shock [Unknown]
  - Diarrhoea [Recovered/Resolved]
  - Supraventricular tachycardia [Recovered/Resolved]
  - Crying [Unknown]
  - Arrhythmia [Unknown]
  - Eczema [Recovered/Resolved]
  - Cyanosis [Unknown]
  - Vomiting [Unknown]

NARRATIVE: CASE EVENT DATE: 201809
